FAERS Safety Report 4781116-7 (Version None)
Quarter: 2005Q3

REPORT INFORMATION
  Report Type: 
  Country: None (occurrence: None)
  Receive Date: 20050928
  Receipt Date: 20050915
  Transmission Date: 20060218
  Serious: Yes (Hospitalization)
  Sender: FDA-Public Use
  Company Number: US-KINGPHARMUSA00001-K200501219

PATIENT

DRUGS (1)
  1. FLORINEF [Suspect]
     Dosage: 500 MCG, QD

REACTIONS (1)
  - OVERDOSE [None]
